FAERS Safety Report 19996393 (Version 1)
Quarter: 2021Q4

REPORT INFORMATION
  Report Type: Spontaneous
  Country: US (occurrence: US)
  Receive Date: 20211026
  Receipt Date: 20211026
  Transmission Date: 20220303
  Serious: No
  Sender: FDA-Public Use
  Company Number: None

PATIENT

DRUGS (1)
  1. NIZORAL A-D [Suspect]
     Active Substance: KETOCONAZOLE
     Indication: Dandruff
     Dosage: ?          QUANTITY:200 ML;
     Route: 061
     Dates: start: 20211024

REACTIONS (9)
  - Product formulation issue [None]
  - Pruritus [None]
  - Alopecia [None]
  - Erythema [None]
  - Eye irritation [None]
  - Skin burning sensation [None]
  - Suspected counterfeit product [None]
  - Product container seal issue [None]
  - Drug interaction [None]

NARRATIVE: CASE EVENT DATE: 20211024
